FAERS Safety Report 19922505 (Version 2)
Quarter: 2021Q4

REPORT INFORMATION
  Report Type: Spontaneous
  Country: JP (occurrence: JP)
  Receive Date: 20211005
  Receipt Date: 20211110
  Transmission Date: 20220304
  Serious: Yes (Life-Threatening, Hospitalization)
  Sender: FDA-Public Use
  Company Number: JP-DSJP-DSJ-2021-131814

PATIENT
  Age: 84 Year
  Sex: Male
  Weight: 53 kg

DRUGS (14)
  1. EDOXABAN TOSYLATE [Suspect]
     Active Substance: EDOXABAN TOSYLATE
     Indication: Cerebral infarction
     Dosage: 30 MG, QD
     Route: 048
     Dates: start: 202007, end: 20210411
  2. EDOXABAN TOSYLATE [Suspect]
     Active Substance: EDOXABAN TOSYLATE
     Indication: Atrial fibrillation
     Dosage: 30 MG, QD
     Route: 048
     Dates: start: 20210416
  3. CLOPIDOGREL [Suspect]
     Active Substance: CLOPIDOGREL BISULFATE
     Indication: Cerebral infarction
     Dosage: 75 MG, QD
     Route: 048
     Dates: end: 20210411
  4. CLOPIDOGREL [Suspect]
     Active Substance: CLOPIDOGREL BISULFATE
     Indication: Atrial fibrillation
  5. CLOPIDOGREL [Suspect]
     Active Substance: CLOPIDOGREL BISULFATE
     Indication: Myocardial infarction
  6. FEBUXOSTAT [Concomitant]
     Active Substance: FEBUXOSTAT
     Indication: Hyperuricaemia
     Dosage: 40 MG
     Route: 048
  7. NAFTOPIDIL [Concomitant]
     Active Substance: NAFTOPIDIL
     Indication: Benign prostatic hyperplasia
     Dosage: 50 MG
     Route: 048
  8. SODIUM FERROUS CITRATE [Concomitant]
     Active Substance: SODIUM FERROUS CITRATE
     Indication: Anaemia
     Dosage: 50 MG, BID
     Route: 048
  9. CANDESARTAN CILEXETIL [Concomitant]
     Active Substance: CANDESARTAN CILEXETIL
     Indication: Hypertension
     Dosage: 8 MG, QD
     Route: 048
  10. FUROSEMIDE [Concomitant]
     Active Substance: FUROSEMIDE
     Indication: Hypertension
     Dosage: 20 MG, QD
     Route: 048
  11. MEMANTINE HYDROCHLORIDE [Concomitant]
     Active Substance: MEMANTINE HYDROCHLORIDE
     Indication: Dementia
     Dosage: 10 MG, QD
     Route: 048
  12. EXELON [Concomitant]
     Active Substance: RIVASTIGMINE TARTRATE
     Indication: Dementia
     Dosage: 18 MG, QD
  13. METILDIGOXIN [Concomitant]
     Active Substance: METILDIGOXIN
     Indication: Diabetes mellitus
     Dosage: 0.05 MG, QD
     Route: 048
  14. URSO [Concomitant]
     Active Substance: URSODIOL
     Indication: Cholelithiasis
     Dosage: 200 MG, TID
     Route: 048

REACTIONS (1)
  - Haemobilia [Recovered/Resolved]

NARRATIVE: CASE EVENT DATE: 20210411
